FAERS Safety Report 14695923 (Version 1)
Quarter: 2018Q1

REPORT INFORMATION
  Report Type: Spontaneous
  Country: US (occurrence: US)
  Receive Date: 20180329
  Receipt Date: 20180329
  Transmission Date: 20180509
  Serious: Yes (Other)
  Sender: FDA-Public Use
  Company Number: US-SA-2018SA039653

PATIENT
  Age: 47 Year
  Sex: Female

DRUGS (43)
  1. MINOCYCLINE HYDROCHLORIDE. [Suspect]
     Active Substance: MINOCYCLINE HYDROCHLORIDE
     Route: 065
  2. CODEINE [Suspect]
     Active Substance: CODEINE
     Route: 065
  3. METHOTREXATE. [Suspect]
     Active Substance: METHOTREXATE
     Indication: RHEUMATOID ARTHRITIS
     Route: 048
  4. LASIX [Concomitant]
     Active Substance: FUROSEMIDE
     Route: 065
  5. ARAVA [Suspect]
     Active Substance: LEFLUNOMIDE
     Route: 048
  6. ORENCIA [Suspect]
     Active Substance: ABATACEPT
     Indication: RHEUMATOID ARTHRITIS
     Route: 042
     Dates: start: 201708
  7. NEOSTIGMINE BROMIDE [Concomitant]
     Active Substance: NEOSTIGMINE BROMIDE
  8. LYRICA [Concomitant]
     Active Substance: PREGABALIN
  9. CLARITIN [Concomitant]
     Active Substance: LORATADINE
     Route: 065
  10. BENTYL [Concomitant]
     Active Substance: DICYCLOMINE HYDROCHLORIDE
     Route: 065
  11. LEXAPRO [Concomitant]
     Active Substance: ESCITALOPRAM OXALATE
     Route: 065
  12. GLUCAGEN [Concomitant]
     Active Substance: GLUCAGON HYDROCHLORIDE
  13. COLCHICINE. [Concomitant]
     Active Substance: COLCHICINE
  14. BUSPAR [Concomitant]
     Active Substance: BUSPIRONE HYDROCHLORIDE
     Route: 065
  15. TRESIBA [Concomitant]
     Active Substance: INSULIN DEGLUDEC
     Route: 065
  16. ROBINUL [Concomitant]
     Active Substance: GLYCOPYRROLATE
  17. BENADRYL [Concomitant]
     Active Substance: DIPHENHYDRAMINE HYDROCHLORIDE
  18. SEROQUEL [Concomitant]
     Active Substance: QUETIAPINE FUMARATE
     Route: 065
  19. LEVOTHYROXINE. [Concomitant]
     Active Substance: LEVOTHYROXINE
     Route: 065
  20. MELATONIN [Concomitant]
     Active Substance: MELATONIN
  21. ENBREL [Suspect]
     Active Substance: ETANERCEPT
     Indication: RHEUMATOID ARTHRITIS
     Route: 058
  22. NOVOLOG [Concomitant]
     Active Substance: INSULIN ASPART
     Route: 065
  23. FLORASTOR [Concomitant]
     Active Substance: SACCHAROMYCES CEREVISIAE
     Route: 065
  24. ZANTAC [Concomitant]
     Active Substance: RANITIDINE HYDROCHLORIDE
  25. CALCIUM CARBONATE. [Concomitant]
     Active Substance: CALCIUM CARBONATE
  26. NEURONTIN [Concomitant]
     Active Substance: GABAPENTIN
     Route: 065
  27. DESYREL [Concomitant]
     Active Substance: TRAZODONE HYDROCHLORIDE
     Route: 065
  28. PRAVACHOL [Concomitant]
     Active Substance: PRAVASTATIN SODIUM
  29. TUCKS [Concomitant]
  30. CEFACLOR. [Concomitant]
     Active Substance: CEFACLOR
  31. ASPIRIN. [Concomitant]
     Active Substance: ASPIRIN
  32. VITAMIN D3 [Concomitant]
     Active Substance: CHOLECALCIFEROL
  33. LOPRESSOR [Concomitant]
     Active Substance: METOPROLOL TARTRATE
  34. XELJANZ [Concomitant]
     Active Substance: TOFACITINIB CITRATE
  35. PLAQUENIL [Suspect]
     Active Substance: HYDROXYCHLOROQUINE SULFATE
     Route: 065
  36. HUMIRA [Suspect]
     Active Substance: ADALIMUMAB
     Indication: RHEUMATOID ARTHRITIS
     Route: 065
  37. PSEUDOEPHEDRINE [Concomitant]
     Active Substance: PSEUDOEPHEDRINE
  38. REGLAN [Concomitant]
     Active Substance: METOCLOPRAMIDE HYDROCHLORIDE
  39. ATIVAN [Concomitant]
     Active Substance: LORAZEPAM
     Route: 065
  40. PRILOSEC [Concomitant]
     Active Substance: OMEPRAZOLE MAGNESIUM
  41. ANUSOL NOS [Concomitant]
     Active Substance: BALSAM PERU\BENZYL BENZOATE\BISMUTH HYDROXIDE\BISMUTH SUBGALLATE\HYDROCORTISONE ACETATE\ZINC OXIDE
     Dosage: 1-12.5
     Route: 065
  42. REMICADE [Suspect]
     Active Substance: INFLIXIMAB
     Indication: RHEUMATOID ARTHRITIS
     Route: 065
  43. AQUAPHOR [Concomitant]
     Active Substance: PETROLATUM
     Route: 065

REACTIONS (71)
  - Carotid artery disease [Not Recovered/Not Resolved]
  - Dysphagia [Unknown]
  - Hyperlipidaemia [Not Recovered/Not Resolved]
  - Abdominal pain upper [Unknown]
  - Syncope [Not Recovered/Not Resolved]
  - Rotator cuff syndrome [Not Recovered/Not Resolved]
  - Hypoaesthesia [Not Recovered/Not Resolved]
  - Diabetic neuropathy [Not Recovered/Not Resolved]
  - Clostridium difficile infection [Unknown]
  - Diabetic ketoacidosis [Not Recovered/Not Resolved]
  - Pyrexia [Unknown]
  - Atrophic vulvovaginitis [Not Recovered/Not Resolved]
  - Fatigue [Not Recovered/Not Resolved]
  - Joint range of motion decreased [Unknown]
  - Joint swelling [Unknown]
  - Hypersensitivity vasculitis [Unknown]
  - Spinal osteoarthritis [Not Recovered/Not Resolved]
  - Myopia [Not Recovered/Not Resolved]
  - Dry eye [Not Recovered/Not Resolved]
  - Cognitive disorder [Not Recovered/Not Resolved]
  - Stomatitis [Unknown]
  - Osteoarthritis [Not Recovered/Not Resolved]
  - Appetite disorder [Unknown]
  - Paraesthesia [Not Recovered/Not Resolved]
  - Back pain [Unknown]
  - Neck pain [Unknown]
  - Joint arthroplasty [Unknown]
  - Radiculopathy [Unknown]
  - Restless legs syndrome [Unknown]
  - Hepatic enzyme increased [Unknown]
  - Infection [Unknown]
  - Anxiety disorder [Not Recovered/Not Resolved]
  - Palpitations [Not Recovered/Not Resolved]
  - Fibromyalgia [Unknown]
  - Rash [Unknown]
  - Diabetes mellitus [Recovering/Resolving]
  - Retinal degeneration [Not Recovered/Not Resolved]
  - Depression [Not Recovered/Not Resolved]
  - Iron deficiency anaemia [Not Recovered/Not Resolved]
  - Nausea [Unknown]
  - Myalgia [Unknown]
  - Spinal osteoarthritis [Unknown]
  - Essential hypertension [Not Recovered/Not Resolved]
  - Cough [Unknown]
  - Osteopenia [Not Recovered/Not Resolved]
  - Toothache [Not Recovered/Not Resolved]
  - Nasal congestion [Unknown]
  - Stomatitis [Unknown]
  - Deafness [Unknown]
  - Arthralgia [Unknown]
  - Arthritis [Unknown]
  - Systemic lupus erythematosus [Not Recovered/Not Resolved]
  - Clostridium difficile infection [Unknown]
  - Fall [Unknown]
  - Dizziness [Not Recovered/Not Resolved]
  - Drug ineffective [Unknown]
  - Anaphylactic reaction [Unknown]
  - Synovitis [Unknown]
  - Carotid artery occlusion [Unknown]
  - Haemorrhagic disorder [Unknown]
  - Chronic kidney disease [Unknown]
  - Drug dependence [Unknown]
  - Presbyopia [Not Recovered/Not Resolved]
  - Orthostatic hypotension [Not Recovered/Not Resolved]
  - Purpura non-thrombocytopenic [Not Recovered/Not Resolved]
  - Gait disturbance [Not Recovered/Not Resolved]
  - Malaise [Not Recovered/Not Resolved]
  - Extrapyramidal disorder [Not Recovered/Not Resolved]
  - Urinary hesitation [Not Recovered/Not Resolved]
  - Pain [Unknown]
  - Impaired gastric emptying [Not Recovered/Not Resolved]

NARRATIVE: CASE EVENT DATE: 20090629
